FAERS Safety Report 16184014 (Version 3)
Quarter: 2019Q2

REPORT INFORMATION
  Report Type: Spontaneous
  Country: AU (occurrence: AU)
  Receive Date: 20190411
  Receipt Date: 20190521
  Transmission Date: 20190711
  Serious: Yes (Other)
  Sender: FDA-Public Use
  Company Number: AU-AMREGENT-20190665

PATIENT
  Age: 88 Year
  Sex: Female
  Weight: 40 kg

DRUGS (8)
  1. OSTELIN [Concomitant]
     Dosage: 1 DOSAGE FORMS IN THE MORNING
     Route: 065
  2. METOPROLOL. [Concomitant]
     Active Substance: METOPROLOL
     Dosage: 50 MG, (25 MG 2 IN 1D)
     Route: 065
  3. PANAMAX [Concomitant]
     Active Substance: ACETAMINOPHEN
     Dosage: 2 GM (1 GM 2 IN 1D)
     Route: 065
  4. PREDNISOLONE. [Concomitant]
     Active Substance: PREDNISOLONE
     Dosage: 5 MG IN THE MORNING
     Route: 065
  5. SOMAC [Concomitant]
     Active Substance: PANTOPRAZOLE SODIUM
     Dosage: 20 MG IN THE MORNING
     Route: 065
  6. DIGOXIN. [Concomitant]
     Active Substance: DIGOXIN
     Dosage: 62.5 MCG IN THE MORNING
     Route: 065
  7. FERINJECT [Suspect]
     Active Substance: FERRIC CARBOXYMALTOSE
     Dosage: 1 GM
     Route: 041
     Dates: start: 20181128, end: 20181128
  8. ALPRAZOLAM. [Concomitant]
     Active Substance: ALPRAZOLAM
     Dosage: 0.25 MG (0.125 MG 2 IN 1D)
     Route: 065

REACTIONS (3)
  - Glomerular filtration rate decreased [Unknown]
  - Ill-defined disorder [Unknown]
  - Hypotension [Unknown]

NARRATIVE: CASE EVENT DATE: 20181129
